FAERS Safety Report 4689137-X (Version None)
Quarter: 2005Q2

REPORT INFORMATION
  Report Type: 
  Country: None (occurrence: None)
  Receive Date: 20050613
  Receipt Date: 20050531
  Transmission Date: 20051028
  Serious: Yes (Other)
  Sender: FDA-Public Use
  Company Number: 2005AC00812

PATIENT
  Age: 7 Year
  Sex: Male

DRUGS (6)
  1. PROPOFOL [Suspect]
     Indication: SEDATION
     Dosage: TOTAL DOSE 6.1 MG/KG BW)
     Route: 042
  2. PROPOFOL [Suspect]
     Dosage: TOTAL DIOSE 6.1 MG/KG BW
     Route: 042
  3. THIOPENTAL SODIUM [Concomitant]
     Indication: ANAESTHESIA
  4. MIVACURIUM [Concomitant]
     Indication: ANAESTHESIA
  5. FENTANYL [Concomitant]
     Indication: ANAESTHESIA
  6. SEVOFLURANE [Concomitant]
     Indication: ANAESTHESIA

REACTIONS (5)
  - BLOOD CREATINE PHOSPHOKINASE INCREASED [None]
  - INJURY [None]
  - LACTIC ACIDOSIS [None]
  - PROCEDURAL COMPLICATION [None]
  - RHABDOMYOLYSIS [None]
